FAERS Safety Report 20447143 (Version 7)
Quarter: 2022Q4

REPORT INFORMATION
  Report Type: Spontaneous
  Country: GB (occurrence: GB)
  Receive Date: 20220209
  Receipt Date: 20221003
  Transmission Date: 20230113
  Serious: Yes (Hospitalization, Other)
  Sender: FDA-Public Use
  Company Number: GB-MHRA-MIDB-2ef325db-7bfd-44c5-b37f-7ea8acde27f6

PATIENT
  Age: 79 Year
  Sex: Female

DRUGS (20)
  1. CITALOPRAM [Suspect]
     Active Substance: CITALOPRAM HYDROBROMIDE
     Indication: Product used for unknown indication
     Dosage: 10 MILLIGRAM, ONCE A DAY (IN THE MORNING)
     Route: 065
  2. OMEPRAZOLE [Suspect]
     Active Substance: OMEPRAZOLE
     Indication: Duodenal ulcer
     Dosage: 40 MILLIGRAM, ONCE A DAY (IN THE MORNING)
     Route: 048
  3. ASPIRIN [Concomitant]
     Active Substance: ASPIRIN
     Indication: Product used for unknown indication
     Dosage: 75 MILLIGRAM, ONCE A DAY
     Route: 065
  4. ASPIRIN [Concomitant]
     Active Substance: ASPIRIN
     Dosage: 75 MILLIGRAM, ONCE A DAY (IN THE MORNING) )
     Route: 065
  5. ENSURE [Concomitant]
     Active Substance: AMINO ACIDS\DEXTROSE\ELECTROLYTES NOS\SOYBEAN OIL\VITAMINS
     Indication: Product used for unknown indication
     Dosage: 3 DOSAGE FORM, ONCE A DAY
     Route: 065
  6. ENSURE [Concomitant]
     Active Substance: AMINO ACIDS\DEXTROSE\ELECTROLYTES NOS\SOYBEAN OIL\VITAMINS
     Dosage: 1 DOSAGE FORM, ONCE A DAY
     Route: 065
  7. FERROUS FUMARATE [Concomitant]
     Active Substance: FERROUS FUMARATE
     Indication: Product used for unknown indication
     Dosage: 420 MILLIGRAM, ONCE A DAY
     Route: 065
  8. FERROUS FUMARATE [Concomitant]
     Active Substance: FERROUS FUMARATE
     Dosage: 210 MILLIGRAM, ONCE A DAY
     Route: 065
  9. FLUTICASONE [Concomitant]
     Active Substance: FLUTICASONE
     Indication: Product used for unknown indication
     Dosage: 50 MICROGRAM
  10. FOLIC ACID [Concomitant]
     Active Substance: FOLIC ACID
     Indication: Product used for unknown indication
     Dosage: 5 MILLIGRAM, ONCE A DAY (IN THE MORNING)
     Route: 065
  11. IPRATROPIUM [Concomitant]
     Active Substance: IPRATROPIUM
     Indication: Product used for unknown indication
     Dosage: 2 DOSAGE FORM, AS NECESSARY (20MICROGRAMS/DOSE INHALER CFC FREE, PUFFS)
     Route: 055
  12. MEMANTINE [Concomitant]
     Active Substance: MEMANTINE
     Indication: Product used for unknown indication
     Dosage: 20 MILLIGRAM, ONCE A DAY
     Route: 065
  13. PHYTONADIONE [Concomitant]
     Active Substance: PHYTONADIONE
     Indication: Product used for unknown indication
     Dosage: 3 DOSAGE FORM, ONCE A DAY
     Route: 065
  14. SALMETEROL [Concomitant]
     Active Substance: SALMETEROL
     Indication: Product used for unknown indication
     Dosage: 100 MICROGRAM, ONCE A DAY
     Route: 065
  15. SALMETEROL [Concomitant]
     Active Substance: SALMETEROL
     Dosage: 50 MICROGRAM, ONCE A DAY (PUFFS)
     Route: 065
  16. SERETIDE [Concomitant]
     Active Substance: FLUTICASONE PROPIONATE\SALMETEROL XINAFOATE
     Indication: Product used for unknown indication
     Dosage: 50 MILLIGRAM
     Route: 065
  17. SERETIDE [Concomitant]
     Active Substance: FLUTICASONE PROPIONATE\SALMETEROL XINAFOATE
     Dosage: 50 MICROGRAM (SALMETEROL AT 100 UG DAILY PUFFS)
     Route: 065
  18. SIMVASTATIN [Concomitant]
     Active Substance: SIMVASTATIN
     Indication: Product used for unknown indication
     Dosage: 20 MILLIGRAM, ONCE A DAY (AT NIGHT)
     Route: 065
  19. THIAMINE [Concomitant]
     Active Substance: THIAMINE
     Indication: Product used for unknown indication
     Dosage: 200 MILLIGRAM, ONCE A DAY
     Route: 065
  20. THIAMINE [Concomitant]
     Active Substance: THIAMINE
     Dosage: 100 MILLIGRAM, ONCE A DAY
     Route: 065

REACTIONS (3)
  - Confusional state [Unknown]
  - Hyponatraemia [Recovered/Resolved]
  - Urinary tract infection [Unknown]
